FAERS Safety Report 4957063-4 (Version None)
Quarter: 2006Q1

REPORT INFORMATION
  Report Type: 
  Country: None (occurrence: None)
  Receive Date: 20060323
  Receipt Date: 20060310
  Transmission Date: 20060701
  Serious: Yes (Hospitalization)
  Sender: FDA-Public Use
  Company Number: 2006036066

PATIENT
  Age: 75 Year
  Sex: Female

DRUGS (6)
  1. AZITHROMYCIN [Suspect]
     Indication: BRONCHITIS
     Dosage: SEE IMAGE
     Dates: start: 20060303, end: 20060303
  2. AZITHROMYCIN [Suspect]
     Indication: BRONCHITIS
     Dosage: SEE IMAGE
     Dates: start: 20060304, end: 20060306
  3. ZYRTEC-D 12 HOUR [Suspect]
     Indication: BRONCHITIS
     Dosage: 1 IN 1 D
     Dates: start: 20060304, end: 20060306
  4. ASACOL [Concomitant]
  5. ACIPHEX [Concomitant]
  6. ALL OTHER THERAPEUTIC PRODUCTS [Concomitant]

REACTIONS (4)
  - HEART RATE INCREASED [None]
  - PALPITATIONS [None]
  - PHARYNGOLARYNGEAL PAIN [None]
  - PNEUMONIA [None]
